FAERS Safety Report 4483980-8 (Version None)
Quarter: 2004Q4

REPORT INFORMATION
  Report Type: 
  Country: None (occurrence: None)
  Receive Date: 20041025
  Receipt Date: 20041015
  Transmission Date: 20050328
  Serious: Yes (Death)
  Sender: FDA-Public Use
  Company Number: BR-ROCHE-383523

PATIENT
  Age: 64 Year
  Sex: Female
  Weight: 64 kg

DRUGS (1)
  1. XELODA [Suspect]
     Indication: BREAST CANCER
     Route: 048
     Dates: start: 20040426, end: 20040720

REACTIONS (5)
  - ANOREXIA [None]
  - APATHY [None]
  - DEHYDRATION [None]
  - DRUG TOXICITY [None]
  - PIGMENTATION DISORDER [None]
